FAERS Safety Report 19096415 (Version 1)
Quarter: 2021Q2

REPORT INFORMATION
  Report Type: Spontaneous
  Country: US (occurrence: US)
  Receive Date: 20210405
  Receipt Date: 20210405
  Transmission Date: 20210717
  Serious: Yes (Hospitalization)
  Sender: FDA-Public Use
  Company Number: None

PATIENT
  Age: 36 Year
  Sex: Female

DRUGS (12)
  1. VOTRIENT [Suspect]
     Active Substance: PAZOPANIB HYDROCHLORIDE
     Indication: PERIPHERAL NERVOUS SYSTEM NEOPLASM
     Route: 048
     Dates: start: 20210210
  2. KLOR?CON [Concomitant]
     Active Substance: POTASSIUM CHLORIDE
  3. MORPHINE [Concomitant]
     Active Substance: MORPHINE
  4. PROMETHAZINE [Concomitant]
     Active Substance: PROMETHAZINE HYDROCHLORIDE
  5. ONDANSETRON [Concomitant]
     Active Substance: ONDANSETRON
  6. SILVADENE [Concomitant]
     Active Substance: SILVER SULFADIAZINE
  7. AMITRIPTYLIN [Concomitant]
     Active Substance: AMITRIPTYLINE
  8. GABAPENTIN. [Concomitant]
     Active Substance: GABAPENTIN
  9. ELIQUIS [Concomitant]
     Active Substance: APIXABAN
  10. MORPHINE [Concomitant]
     Active Substance: MORPHINE
  11. OXYCODONE [Concomitant]
     Active Substance: OXYCODONE
  12. NALOXONE [Concomitant]
     Active Substance: NALOXONE

REACTIONS (1)
  - Heart rate increased [None]

NARRATIVE: CASE EVENT DATE: 20210404
